FAERS Safety Report 24288715 (Version 1)
Quarter: 2024Q3

REPORT INFORMATION
  Report Type: Report from Study
  Country: US (occurrence: US)
  Receive Date: 20240906
  Receipt Date: 20240906
  Transmission Date: 20241016
  Serious: Yes (Death)
  Sender: RECORDATI
  Company Number: US-ORPHANEU-2024006638

PATIENT

DRUGS (6)
  1. SILTUXIMAB [Suspect]
     Active Substance: SILTUXIMAB
     Indication: Cytokine release syndrome
     Dosage: UNK (1 DOSE)
  2. SILTUXIMAB [Suspect]
     Active Substance: SILTUXIMAB
     Indication: Off label use
  3. RUXOLITINIB [Suspect]
     Active Substance: RUXOLITINIB
     Indication: Cytokine release syndrome
     Dosage: UNK
  4. ANAKINRA [Suspect]
     Active Substance: ANAKINRA
     Indication: Cytokine release syndrome
     Dosage: UNK
  5. TOCILIZUMAB [Suspect]
     Active Substance: TOCILIZUMAB
     Indication: Cytokine release syndrome
     Dosage: 2 DOSE
  6. CYCLOPHOSPHAMIDE [Suspect]
     Active Substance: CYCLOPHOSPHAMIDE
     Indication: Cytokine release syndrome
     Dosage: UNK

REACTIONS (4)
  - Infection [Fatal]
  - Escherichia infection [Unknown]
  - Staphylococcal infection [Unknown]
  - Off label use [Recovered/Resolved]
